FAERS Safety Report 7206937-2 (Version None)
Quarter: 2011Q1

REPORT INFORMATION
  Report Type: 
  Country: None (occurrence: None)
  Receive Date: 20110103
  Receipt Date: 20101227
  Transmission Date: 20110831
  Serious: Yes (Death)
  Sender: FDA-Public Use
  Company Number: A0901814A

PATIENT
  Age: 76 Year
  Sex: Female

DRUGS (1)
  1. ARIXTRA [Suspect]
     Route: 042
     Dates: start: 20100128, end: 20100701

REACTIONS (1)
  - DEATH [None]
